FAERS Safety Report 17358905 (Version 3)
Quarter: 2020Q3

REPORT INFORMATION
  Report Type: Spontaneous
  Country: US (occurrence: US)
  Receive Date: 20200202
  Receipt Date: 20200512
  Transmission Date: 20201104
  Serious: Yes (Other)
  Sender: FDA-Public Use
  Company Number: NVSC2020US018099

PATIENT
  Sex: Female

DRUGS (2)
  1. EYLEA [Concomitant]
     Active Substance: AFLIBERCEPT
     Indication: PRODUCT USED FOR UNKNOWN INDICATION
     Dosage: UNK
     Route: 065
  2. BROLUCIZUMAB. [Suspect]
     Active Substance: BROLUCIZUMAB
     Indication: PRODUCT USED FOR UNKNOWN INDICATION
     Dosage: 6 MG, QMO
     Route: 050
     Dates: start: 20191219, end: 20200106

REACTIONS (3)
  - Vision blurred [Unknown]
  - Keratic precipitates [Unknown]
  - Visual impairment [Unknown]

NARRATIVE: CASE EVENT DATE: 20191219
